FAERS Safety Report 7321962-9 (Version None)
Quarter: 2011Q1

REPORT INFORMATION
  Report Type: 
  Country: None (occurrence: None)
  Receive Date: 20110228
  Receipt Date: 20110221
  Transmission Date: 20110831
  Serious: No
  Sender: FDA-Public Use
  Company Number: US-PFIZER INC-2011015192

PATIENT
  Age: 46 Year
  Sex: Female
  Weight: 61.224 kg

DRUGS (1)
  1. ADVIL COLD AND SINUS [Suspect]
     Indication: NASOPHARYNGITIS
     Dosage: 1 LIQUI-GEL, 2X/DAY
     Route: 048
     Dates: start: 20110101

REACTIONS (1)
  - DRUG INEFFECTIVE [None]
